FAERS Safety Report 9774370 (Version 2)
Quarter: 2014Q1

REPORT INFORMATION
  Report Type: Spontaneous
  Country: US (occurrence: US)
  Receive Date: 20131220
  Receipt Date: 20140103
  Transmission Date: 20141002
  Serious: Yes (Life-Threatening, Hospitalization)
  Sender: FDA-Public Use
  Company Number: US-JNJFOC-20131209567

PATIENT
  Sex: Female

DRUGS (9)
  1. XARELTO [Suspect]
     Indication: ANTIPHOSPHOLIPID SYNDROME
     Dosage: 42 TABLETS
     Route: 048
     Dates: start: 20131101, end: 2013
  2. XARELTO [Suspect]
     Indication: ANTIPHOSPHOLIPID SYNDROME
     Route: 048
     Dates: end: 20131206
  3. XARELTO [Suspect]
     Indication: PULMONARY EMBOLISM
     Route: 048
     Dates: end: 20131206
  4. XARELTO [Suspect]
     Indication: PULMONARY EMBOLISM
     Dosage: 42 TABLETS
     Route: 048
     Dates: start: 20131101, end: 2013
  5. XARELTO [Suspect]
     Indication: DEEP VEIN THROMBOSIS
     Dosage: 42 TABLETS
     Route: 048
     Dates: start: 20131101, end: 2013
  6. XARELTO [Suspect]
     Indication: DEEP VEIN THROMBOSIS
     Route: 048
     Dates: end: 20131206
  7. PRAVASTATIN [Concomitant]
     Indication: HYPERLIPIDAEMIA
     Dosage: YEARS
     Route: 065
  8. SERTRALINE [Concomitant]
     Indication: DEPRESSION
     Dosage: YEARS
     Route: 065
  9. SYNTHROID [Concomitant]
     Indication: HYPOTHYROIDISM
     Dosage: YEARS
     Route: 065

REACTIONS (1)
  - Embolism [Recovering/Resolving]
